FAERS Safety Report 25360995 (Version 1)
Quarter: 2025Q2

REPORT INFORMATION
  Report Type: Spontaneous
  Country: TZ (occurrence: TZ)
  Receive Date: 20250527
  Receipt Date: 20250527
  Transmission Date: 20250717
  Serious: Yes (Other)
  Sender: RANBAXY
  Company Number: TZ-SUN PHARMACEUTICAL INDUSTRIES LTD-2025RR-508902

PATIENT
  Age: 22 Month
  Sex: Male
  Weight: 11.5 kg

DRUGS (4)
  1. EPINEPHRINE [Suspect]
     Active Substance: EPINEPHRINE
     Indication: Anaphylactic reaction
     Route: 065
  2. DEXAMETHASONE [Suspect]
     Active Substance: DEXAMETHASONE
     Indication: Anaphylactic reaction
     Dosage: 4 MILLIGRAM, BID
     Route: 030
  3. FUROSEMIDE [Suspect]
     Active Substance: FUROSEMIDE
     Indication: Renal impairment
     Route: 065
  4. ACETAMINOPHEN [Concomitant]
     Active Substance: ACETAMINOPHEN
     Indication: Anaphylactic reaction
     Dosage: 125 MILLIGRAM, TID
     Route: 054

REACTIONS (2)
  - Condition aggravated [Unknown]
  - Drug ineffective [Unknown]
